FAERS Safety Report 6259176-6 (Version None)
Quarter: 2009Q3

REPORT INFORMATION
  Report Type: 
  Country: None (occurrence: None)
  Receive Date: 20090707
  Receipt Date: 20090701
  Transmission Date: 20100115
  Serious: Yes (Other)
  Sender: FDA-Public Use
  Company Number: US-AVENTIS-200914204US

PATIENT
  Sex: Male
  Weight: 101.36 kg

DRUGS (5)
  1. LANTUS [Suspect]
     Indication: TYPE 2 DIABETES MELLITUS
     Route: 058
  2. OPTICLIK (INSULIN INJECTION PEN) [Suspect]
     Indication: TYPE 2 DIABETES MELLITUS
  3. HUMALOG [Concomitant]
     Dosage: DOSE: UNK
  4. ANTIBIOTICS [Concomitant]
     Dosage: DOSE: UNK
  5. NOVOLOG [Concomitant]

REACTIONS (3)
  - MACULAR DEGENERATION [None]
  - RETINOPATHY [None]
  - VISION BLURRED [None]
